FAERS Safety Report 17484361 (Version 1)
Quarter: 2020Q1

REPORT INFORMATION
  Report Type: Spontaneous
  Country: US (occurrence: US)
  Receive Date: 20200302
  Receipt Date: 20200302
  Transmission Date: 20200409
  Serious: Yes (Other)
  Sender: FDA-Public Use
  Company Number: US-ANIPHARMA-2019-US-019068

PATIENT
  Age: 64 Year
  Sex: Female
  Weight: 62 kg

DRUGS (1)
  1. CASODEX [Suspect]
     Active Substance: BICALUTAMIDE
     Indication: BREAST CANCER
     Dosage: ONE TABLET PER DAY
     Route: 048
     Dates: start: 20190925, end: 20190928

REACTIONS (17)
  - Abdominal discomfort [Not Recovered/Not Resolved]
  - Platelet count decreased [Not Recovered/Not Resolved]
  - Off label use [Recovered/Resolved]
  - Alanine aminotransferase increased [Unknown]
  - Blood bilirubin increased [Unknown]
  - White blood cell count increased [Not Recovered/Not Resolved]
  - International normalised ratio increased [Unknown]
  - Nausea [Not Recovered/Not Resolved]
  - Ocular icterus [Not Recovered/Not Resolved]
  - Blood alkaline phosphatase increased [Unknown]
  - Decreased appetite [Not Recovered/Not Resolved]
  - Jaundice [Not Recovered/Not Resolved]
  - Infection [Not Recovered/Not Resolved]
  - Blood pressure decreased [Not Recovered/Not Resolved]
  - Aspartate aminotransferase increased [Unknown]
  - Acute hepatic failure [Unknown]
  - Liver function test increased [Not Recovered/Not Resolved]

NARRATIVE: CASE EVENT DATE: 20190925
